FAERS Safety Report 8558282-0 (Version None)
Quarter: 2012Q3

REPORT INFORMATION
  Report Type: 
  Country: None (occurrence: None)
  Receive Date: 20120801
  Receipt Date: 20120730
  Transmission Date: 20120928
  Serious: Yes (Other)
  Sender: FDA-Public Use
  Company Number: US-JNJFOC-20120513076

PATIENT
  Sex: Female
  Weight: 48.54 kg

DRUGS (13)
  1. METFORMIN HYDROCHLORIDE [Concomitant]
     Indication: DIABETES MELLITUS
     Route: 065
     Dates: start: 20100330
  2. MECLIZINE [Concomitant]
     Indication: DIABETES MELLITUS
     Dosage: AS NECESSARY
     Route: 065
  3. ONGLYZA [Concomitant]
     Indication: DIABETES MELLITUS
     Route: 065
     Dates: start: 20100330
  4. ONGLYZA [Concomitant]
     Route: 065
  5. LEVEMIR [Concomitant]
     Indication: TYPE 2 DIABETES MELLITUS
     Route: 058
     Dates: start: 20110901
  6. METFORMIN HYDROCHLORIDE [Concomitant]
     Route: 065
  7. LEVEMIR [Concomitant]
     Indication: DIABETES MELLITUS
     Route: 065
  8. METFORMIN HYDROCHLORIDE [Concomitant]
     Route: 065
     Dates: start: 20100307
  9. NOVOLOG [Concomitant]
     Indication: DIABETES MELLITUS
     Dosage: 100 UNIT/ML, BEFORE MEALS
     Route: 058
     Dates: start: 20120123
  10. CINNAMON [Concomitant]
     Route: 065
  11. ELMIRON [Suspect]
     Indication: CYSTITIS INTERSTITIAL
     Route: 048
     Dates: start: 20120513, end: 20120514
  12. UNKNOWN MEDICATION [Concomitant]
     Indication: DIABETES MELLITUS
     Route: 065
  13. PRAVACHOL [Concomitant]
     Route: 065

REACTIONS (6)
  - BLOOD PRESSURE INCREASED [None]
  - IRRITABILITY [None]
  - HEART RATE INCREASED [None]
  - MENTAL DISORDER [None]
  - PELVIC PAIN [None]
  - DEPRESSION [None]
